FAERS Safety Report 15991099 (Version 2)
Quarter: 2019Q1

REPORT INFORMATION
  Report Type: Spontaneous
  Country: SK (occurrence: SK)
  Receive Date: 20190221
  Receipt Date: 20190228
  Transmission Date: 20190418
  Serious: Yes (Death, Other)
  Sender: FDA-Public Use
  Company Number: PHHY2019SK040017

PATIENT
  Sex: Male
  Weight: 2.66 kg

DRUGS (1)
  1. LEVETIRACETAM. [Suspect]
     Active Substance: LEVETIRACETAM
     Indication: SEIZURE
     Dosage: UNK
     Route: 065

REACTIONS (9)
  - Seizure [Fatal]
  - Hypotonia [Unknown]
  - Drug ineffective [Unknown]
  - Product use issue [Unknown]
  - Decreased activity [Unknown]
  - Respiratory failure [Fatal]
  - Apnoea [Fatal]
  - Hypothermia [Unknown]
  - Rhinorrhoea [Unknown]
